FAERS Safety Report 20224995 (Version 1)
Quarter: 2021Q4

REPORT INFORMATION
  Report Type: Spontaneous
  Country: US (occurrence: US)
  Receive Date: 20211223
  Receipt Date: 20211223
  Transmission Date: 20220303
  Serious: No
  Sender: FDA-Public Use
  Company Number: US-TAKEDA-2021TUS081147

PATIENT
  Sex: Female
  Weight: 59 kg

DRUGS (1)
  1. MOTEGRITY [Suspect]
     Active Substance: PRUCALOPRIDE SUCCINATE
     Indication: Diabetic gastroparesis
     Dosage: 2 MILLIGRAM
     Route: 065

REACTIONS (7)
  - Pain [Unknown]
  - Constipation [Unknown]
  - Vomiting [Unknown]
  - Illness [Unknown]
  - Drug ineffective [Unknown]
  - Product dispensing error [Unknown]
  - Off label use [Unknown]
